APPROVED DRUG PRODUCT: LISINOPRIL
Active Ingredient: LISINOPRIL
Strength: 40MG
Dosage Form/Route: TABLET;ORAL
Application: A203508 | Product #006 | TE Code: AB
Applicant: INVAGEN PHARMACEUTICALS INC
Approved: Oct 29, 2013 | RLD: No | RS: No | Type: RX